FAERS Safety Report 5717641-1 (Version None)
Quarter: 2008Q2

REPORT INFORMATION
  Report Type: 
  Country: None (occurrence: None)
  Receive Date: 20080425
  Receipt Date: 20080422
  Transmission Date: 20081010
  Serious: Yes (Hospitalization)
  Sender: FDA-Public Use
  Company Number: MX-AVENTIS-200813440GDDC

PATIENT
  Age: 74 Year
  Sex: Male
  Weight: 65 kg

DRUGS (5)
  1. LANTUS [Suspect]
     Route: 058
     Dates: end: 20080102
  2. LANTUS [Suspect]
     Route: 058
     Dates: start: 20080403, end: 20080403
  3. GLINORBORAL [Concomitant]
     Indication: TYPE 2 DIABETES MELLITUS
     Dosage: DOSE QUANTITY: 2
     Route: 048
     Dates: end: 20080403
  4. CRESTOR [Concomitant]
     Route: 048
  5. ISCOVER [Concomitant]
     Route: 048

REACTIONS (8)
  - DEHYDRATION [None]
  - DIABETIC KETOACIDOSIS [None]
  - FATIGUE [None]
  - HYPERGLYCAEMIA [None]
  - INJECTION SITE PAIN [None]
  - LABORATORY TEST ABNORMAL [None]
  - PHARMACEUTICAL PRODUCT COMPLAINT [None]
  - SOMNOLENCE [None]
